FAERS Safety Report 6287461-0 (Version None)
Quarter: 2009Q3

REPORT INFORMATION
  Report Type: 
  Country: None (occurrence: None)
  Receive Date: 20090727
  Receipt Date: 20090720
  Transmission Date: 20100115
  Serious: Yes (Other)
  Sender: FDA-Public Use
  Company Number: 2009SP013987

PATIENT
  Age: 15 Year
  Sex: Female
  Weight: 58 kg

DRUGS (25)
  1. NOXAFIL [Suspect]
     Indication: ANTIFUNGAL PROPHYLAXIS
     Dosage: 200 MG;TID;PO;  200 MG;TID
     Route: 048
     Dates: start: 20090530, end: 20090607
  2. NOXAFIL [Suspect]
     Indication: ANTIFUNGAL PROPHYLAXIS
     Dosage: 200 MG;TID;PO;  200 MG;TID
     Route: 048
     Dates: start: 20090630
  3. LUTENYL (NOMEGESTROL ACETATE) [Suspect]
     Indication: METRORRHAGIA
     Dosage: 2 DF; QD; PO
     Route: 048
     Dates: start: 20081111
  4. RIVOTRIL (CLONAZEPAM) [Suspect]
     Indication: AGITATION
     Dosage: 4 MG; QD; PO
     Route: 048
     Dates: start: 20090518, end: 20090607
  5. CYCLOSPORINE [Suspect]
     Indication: PROPHYLAXIS AGAINST TRANSPLANT REJECTION
     Dosage: 40 MG;BID;PO
     Route: 048
     Dates: start: 20090421, end: 20090607
  6. RISPERDAL [Concomitant]
  7. SOLU-MEDROL [Concomitant]
  8. FUNGIZONE [Concomitant]
  9. POLARAMINE (DEXBROMPHENIRAMINE MALEATE) [Concomitant]
  10. FORTUM [Concomitant]
  11. INSULATARD [Concomitant]
  12. NOVORAPID [Concomitant]
  13. LAMICTAL [Concomitant]
  14. URSO FALK [Concomitant]
  15. KEPPRA [Concomitant]
  16. POLYETHYLENE GLYCOL [Concomitant]
  17. ZOVIRAX [Concomitant]
  18. BACTRIM [Concomitant]
  19. ORACILLINE [Concomitant]
  20. CELLCEPT [Concomitant]
  21. MOPRAL [Concomitant]
  22. NICARDIPINE HCL [Concomitant]
  23. VIT B1 B6 [Concomitant]
  24. LOVENOX [Concomitant]
  25. MAG 2 [Concomitant]

REACTIONS (3)
  - AGITATION [None]
  - DRUG INTERACTION [None]
  - HYPERTRIGLYCERIDAEMIA [None]
